FAERS Safety Report 24402230 (Version 2)
Quarter: 2024Q4

REPORT INFORMATION
  Report Type: Spontaneous
  Country: CH (occurrence: CH)
  Receive Date: 20241007
  Receipt Date: 20241023
  Transmission Date: 20250114
  Serious: Yes (Hospitalization, Other)
  Sender: NOVO NORDISK
  Company Number: CH-NOVOPROD-1292067

PATIENT
  Age: 15 Year
  Sex: Male
  Weight: 50 kg

DRUGS (1)
  1. NORDITROPIN [Suspect]
     Active Substance: SOMATROPIN
     Indication: Short stature
     Dosage: 1.3 MG, QD
     Route: 058
     Dates: start: 202002, end: 20240909

REACTIONS (3)
  - Osteonecrosis [Not Recovered/Not Resolved]
  - Arthritis [Unknown]
  - Dizziness [Recovered/Resolved]

NARRATIVE: CASE EVENT DATE: 20230101
